FAERS Safety Report 5856988-5 (Version None)
Quarter: 2008Q3

REPORT INFORMATION
  Report Type: 
  Country: None (occurrence: None)
  Receive Date: 20080825
  Receipt Date: 20080819
  Transmission Date: 20090109
  Serious: Yes (Other)
  Sender: FDA-Public Use
  Company Number: NL-BOEHRINGER INGELHEIM GMBH, GERMANY-2008-BP-13044RO

PATIENT
  Age: 11 Year
  Sex: Male

DRUGS (4)
  1. FLUTICASONE PROPIONATE [Suspect]
  2. FLUTICASONE PROPIONATE [Suspect]
     Route: 045
  3. MONTELUKAST SODIUM [Suspect]
  4. SALBUTAMOL [Concomitant]

REACTIONS (1)
  - PURPURA [None]
